FAERS Safety Report 23989797 (Version 1)
Quarter: 2024Q2

REPORT INFORMATION
  Report Type: Spontaneous
  Country: OM (occurrence: OM)
  Receive Date: 20240619
  Receipt Date: 20240619
  Transmission Date: 20240716
  Serious: Yes (Other)
  Sender: FDA-Public Use
  Company Number: OM-PFIZER INC-PV202400078510

PATIENT
  Age: 33 Year

DRUGS (2)
  1. DEPO-MEDROL [Suspect]
     Active Substance: METHYLPREDNISOLONE ACETATE
     Indication: Joint effusion
     Dosage: 1.5 ML (IN THE RIGHT KNEE)
     Route: 014
     Dates: start: 20240612, end: 20240612
  2. LIDOCAINE [Concomitant]
     Active Substance: LIDOCAINE
     Indication: Joint effusion
     Dosage: 3 ML (IN THE RIGHT KNEE)
     Route: 014
     Dates: start: 20240612, end: 20240612

REACTIONS (4)
  - Suspected counterfeit product [Not Recovered/Not Resolved]
  - Product complaint [Not Recovered/Not Resolved]
  - Injection site joint pain [Not Recovered/Not Resolved]
  - Injection site joint swelling [Not Recovered/Not Resolved]

NARRATIVE: CASE EVENT DATE: 20240612
